FAERS Safety Report 15018400 (Version 1)
Quarter: 2018Q2

REPORT INFORMATION
  Report Type: Spontaneous
  Country: ES (occurrence: ES)
  Receive Date: 20180615
  Receipt Date: 20180615
  Transmission Date: 20180711
  Serious: Yes (Other)
  Sender: FDA-Public Use
  Company Number: ES-CANTON LABORATORIES, LLC-2049500

PATIENT
  Sex: Female

DRUGS (20)
  1. AMITRIPTYLINE HYDROCHLORIDE. [Suspect]
     Active Substance: AMITRIPTYLINE HYDROCHLORIDE
     Route: 065
     Dates: start: 20180509, end: 20180516
  2. DIAZEPAM. [Suspect]
     Active Substance: DIAZEPAM
     Route: 065
     Dates: start: 20160901
  3. OMEPRAZOLE. [Suspect]
     Active Substance: OMEPRAZOLE
     Route: 065
     Dates: start: 20160901, end: 20161125
  4. METOCLOPRAMIDE. [Concomitant]
     Active Substance: METOCLOPRAMIDE
     Route: 065
  5. NAPROSYN [Suspect]
     Active Substance: NAPROXEN
     Indication: PRODUCT USED FOR UNKNOWN INDICATION
     Route: 065
     Dates: start: 20160901, end: 20161118
  6. AMITRIPTYLINE HYDROCHLORIDE. [Suspect]
     Active Substance: AMITRIPTYLINE HYDROCHLORIDE
     Route: 065
     Dates: start: 20160516
  7. TOPIRAMATE. [Suspect]
     Active Substance: TOPIRAMATE
     Route: 065
     Dates: start: 20160901, end: 20170509
  8. AMITRIPTYLINE HYDROCHLORIDE. [Suspect]
     Active Substance: AMITRIPTYLINE HYDROCHLORIDE
     Route: 065
     Dates: start: 20161118
  9. ENALAPRIL MALEATE AND HYDROCHLOROTHIAZIDE [Suspect]
     Active Substance: ENALAPRIL MALEATE\HYDROCHLOROTHIAZIDE
     Route: 065
     Dates: start: 20160901
  10. ESCITALOPRAM [Suspect]
     Active Substance: ESCITALOPRAM OXALATE
     Route: 065
     Dates: start: 20160901
  11. PARACETAMOL [Suspect]
     Active Substance: ACETAMINOPHEN
     Route: 065
     Dates: start: 20160901, end: 20160930
  12. DIAZEPAM. [Suspect]
     Active Substance: DIAZEPAM
     Route: 065
     Dates: start: 20160930, end: 20161021
  13. PARACETAMOL AND TRAMADOL [Suspect]
     Active Substance: ACETAMINOPHEN\TRAMADOL
     Route: 065
     Dates: start: 20161118
  14. AMLODIPINE [Suspect]
     Active Substance: AMLODIPINE BESYLATE
     Route: 065
     Dates: start: 20160901
  15. SIMVASTATIN. [Suspect]
     Active Substance: SIMVASTATIN
     Route: 065
     Dates: start: 20170420
  16. DIAZEPAM SULPRIDE [Suspect]
     Active Substance: DIAZEPAM\SULPIRIDE
     Route: 065
     Dates: start: 20160901
  17. GLIBENCLAMIDE [Suspect]
     Active Substance: GLYBURIDE
     Route: 065
     Dates: start: 20160901
  18. TOPIRAMATE. [Suspect]
     Active Substance: TOPIRAMATE
     Route: 065
     Dates: start: 20170203, end: 20170420
  19. LORMETAZEPAM [Suspect]
     Active Substance: LORMETAZEPAM
     Route: 065
     Dates: start: 20160901, end: 20160930
  20. SIMVASTATIN. [Suspect]
     Active Substance: SIMVASTATIN
     Route: 065
     Dates: start: 20160901, end: 20170420

REACTIONS (9)
  - Somnolence [Recovering/Resolving]
  - Fall [Unknown]
  - Drug ineffective [Unknown]
  - Headache [Not Recovered/Not Resolved]
  - Treatment noncompliance [Unknown]
  - Dizziness [Recovering/Resolving]
  - Depression [Recovering/Resolving]
  - Insomnia [Recovering/Resolving]
  - Pain in extremity [Recovered/Resolved]

NARRATIVE: CASE EVENT DATE: 201610
